FAERS Safety Report 14349892 (Version 1)
Quarter: 2018Q1

REPORT INFORMATION
  Report Type: Spontaneous
  Country: US (occurrence: US)
  Receive Date: 20180103
  Receipt Date: 20180103
  Transmission Date: 20180509
  Serious: Yes (Hospitalization, Other)
  Sender: FDA-Public Use
  Company Number: None

PATIENT
  Age: 47 Year
  Sex: Female
  Weight: 85.5 kg

DRUGS (6)
  1. TYLENOL [Concomitant]
     Active Substance: ACETAMINOPHEN
  2. PROHANCE [Suspect]
     Active Substance: GADOTERIDOL
     Indication: SCAN WITH CONTRAST
     Dosage: ?          QUANTITY:1 INJECTION(S);OTHER FREQUENCY:1 TIME FOR IMAGE;?
     Route: 042
     Dates: start: 20171222, end: 20171222
  3. PROHANCE [Suspect]
     Active Substance: GADOTERIDOL
     Indication: NUCLEAR MAGNETIC RESONANCE IMAGING
     Dosage: ?          QUANTITY:1 INJECTION(S);OTHER FREQUENCY:1 TIME FOR IMAGE;?
     Route: 042
     Dates: start: 20171222, end: 20171222
  4. IRON [Concomitant]
     Active Substance: IRON
  5. IBUPROFEN. [Concomitant]
     Active Substance: IBUPROFEN
  6. MULTI-VITAMIN [Concomitant]
     Active Substance: .ALPHA.-TOCOPHEROL ACETATE, DL-\ASCORBIC ACID\CYANOCOBALAMIN\FLUORIDE ION\FOLIC ACID\NIACIN\PYRIDOXINE\RIBOFLAVIN\THIAMINE\VITAMIN A\VITAMIN D

REACTIONS (22)
  - Feeling hot [None]
  - Malaise [None]
  - Oropharyngeal pain [None]
  - Anxiety [None]
  - Dyspepsia [None]
  - Skin discolouration [None]
  - Urticaria [None]
  - Chest pain [None]
  - Toxicity to various agents [None]
  - Pain [None]
  - Infusion site pain [None]
  - Blood pressure increased [None]
  - Feeling jittery [None]
  - Burning sensation [None]
  - Infusion site extravasation [None]
  - Abdominal pain upper [None]
  - Nausea [None]
  - Infusion site swelling [None]
  - Vasodilatation [None]
  - Throat irritation [None]
  - Headache [None]
  - Cough [None]

NARRATIVE: CASE EVENT DATE: 20171222
